FAERS Safety Report 7679695-5 (Version None)
Quarter: 2011Q3

REPORT INFORMATION
  Report Type: 
  Country: None (occurrence: None)
  Receive Date: 20110812
  Receipt Date: 20110804
  Transmission Date: 20111222
  Serious: Yes (Hospitalization)
  Sender: FDA-Public Use
  Company Number: US-PFIZER INC-S99-USA-00756-01

PATIENT
  Sex: Female

DRUGS (5)
  1. TESSALON [Suspect]
     Dosage: 400 MG (400 MG,ONCE A DAY)
     Route: 048
     Dates: start: 19990415, end: 19990415
  2. METABOLIFE [Suspect]
  3. PROZAC [Suspect]
     Dosage: UNKNOWN
  4. ZOLOFT [Suspect]
     Dosage: UNKNOWN
  5. PHENTERMINE [Suspect]
     Dosage: UNKNOWN

REACTIONS (3)
  - HYPERHIDROSIS [None]
  - ATRIOVENTRICULAR BLOCK COMPLETE [None]
  - SUICIDE ATTEMPT [None]
